FAERS Safety Report 13140632 (Version 1)
Quarter: 2017Q1

REPORT INFORMATION
  Report Type: Spontaneous
  Country: US (occurrence: US)
  Receive Date: 20170123
  Receipt Date: 20170123
  Transmission Date: 20170428
  Serious: No
  Sender: FDA-Public Use
  Company Number: US-UNITED THERAPEUTICS-UNT-2016-014216

PATIENT
  Age: 63 Year
  Sex: Female
  Weight: 61 kg

DRUGS (4)
  1. LETAIRIS [Concomitant]
     Active Substance: AMBRISENTAN
     Indication: PRODUCT USED FOR UNKNOWN INDICATION
  2. REMODULIN [Suspect]
     Active Substance: TREPROSTINIL
     Dosage: 0.00825 ?G/KG, CONTINUING
     Route: 041
  3. LASIX [Suspect]
     Active Substance: FUROSEMIDE
     Indication: PRODUCT USED FOR UNKNOWN INDICATION
  4. REMODULIN [Suspect]
     Active Substance: TREPROSTINIL
     Indication: PULMONARY HYPERTENSION
     Dosage: 0.007 ?G/KG, CONTINUING
     Route: 041
     Dates: start: 20160901

REACTIONS (14)
  - Musculoskeletal pain [Unknown]
  - Pruritus [Not Recovered/Not Resolved]
  - Pain in extremity [Recovering/Resolving]
  - Epistaxis [Recovered/Resolved]
  - Weight decreased [Unknown]
  - Headache [Not Recovered/Not Resolved]
  - Peripheral swelling [Unknown]
  - Rales [Unknown]
  - Constipation [Unknown]
  - Muscle spasms [Unknown]
  - Arthralgia [Unknown]
  - Eating disorder [Unknown]
  - Injection site pruritus [Unknown]
  - Pain in jaw [Not Recovered/Not Resolved]

NARRATIVE: CASE EVENT DATE: 201609
